FAERS Safety Report 8777543 (Version 1)
Quarter: 2012Q4

REPORT INFORMATION
  Report Type: 
  Country: CA (occurrence: CA)
  Receive Date: 20120907
  Receipt Date: 20120907
  Transmission Date: 20130627
  Serious: Yes (Hospitalization)
  Sender: FDA-Public Use
  Company Number: CA-ELI_LILLY_AND_COMPANY-CA201208008834

PATIENT
  Sex: Male

DRUGS (2)
  1. HUMULIN REGULAR [Suspect]
     Dosage: UNK UNK, unknown
     Dates: start: 20120827
  2. HUMULIN NPH [Suspect]
     Dosage: UNK UNK, unknown

REACTIONS (2)
  - Hospitalisation [Unknown]
  - Throat irritation [Unknown]
